FAERS Safety Report 5280880-0 (Version None)
Quarter: 2007Q1

REPORT INFORMATION
  Report Type: 
  Country: None (occurrence: None)
  Receive Date: 20061229
  Receipt Date: 20060707
  Transmission Date: 20070707
  Serious: Yes (Other)
  Sender: FDA-Public Use
  Company Number: 2006UW14162

PATIENT
  Age: 71 Year
  Sex: Female
  Weight: 83.007 kg

DRUGS (8)
  1. CRESTOR [Suspect]
     Indication: BLOOD CHOLESTEROL INCREASED
     Dosage: SEE IMAGE
     Route: 048
     Dates: start: 20050701, end: 20051001
  2. CRESTOR [Suspect]
     Indication: BLOOD CHOLESTEROL INCREASED
     Dosage: SEE IMAGE
     Route: 048
     Dates: start: 20051001
  3. DIABINESE [Concomitant]
  4. METOPROLOL SUCCINATE [Concomitant]
  5. XANAX [Concomitant]
  6. FUROSEMIDE [Concomitant]
  7. ECOTRIN [Concomitant]
  8. M.V.I. [Concomitant]

REACTIONS (4)
  - ABDOMINAL PAIN UPPER [None]
  - HEADACHE [None]
  - PAIN IN EXTREMITY [None]
  - TREMOR [None]
